FAERS Safety Report 7576888-2 (Version None)
Quarter: 2011Q2

REPORT INFORMATION
  Report Type: 
  Country: None (occurrence: None)
  Receive Date: 20110628
  Receipt Date: 20110531
  Transmission Date: 20111010
  Serious: Yes (Other)
  Sender: FDA-Public Use
  Company Number: US-BAYER-201031621NA

PATIENT
  Age: 31 Year
  Sex: Female
  Weight: 117.91 kg

DRUGS (8)
  1. PRAVASTATIN [Concomitant]
     Indication: BLOOD CHOLESTEROL INCREASED
     Dosage: UNK
     Dates: start: 20090101
  2. YAZ [Suspect]
     Indication: CONTRACEPTION
     Dosage: 1 DF, QD
     Dates: start: 20070402, end: 20090905
  3. HYDROCHLOROTHIAZIDE [Concomitant]
     Indication: BLOOD PRESSURE INCREASED
     Dosage: 25 MG, QD
     Dates: start: 20060101
  4. YASMIN [Suspect]
     Dosage: UNK
     Dates: start: 20070402, end: 20090905
  5. ANTI-ASTHMATICS [Concomitant]
     Dosage: UNK UNK, PRN
  6. NAPROXEN [Concomitant]
     Dosage: UNK UNK, PRN
  7. ZYRTEC [Concomitant]
     Dosage: UNK, PRN
  8. YASMIN [Suspect]
     Indication: CONTRACEPTION
     Dosage: 1 DF, QD
     Route: 048
     Dates: start: 20050122, end: 20061117

REACTIONS (6)
  - CHOLECYSTITIS CHRONIC [None]
  - NAUSEA [None]
  - CHOLELITHIASIS [None]
  - ABDOMINAL DISTENSION [None]
  - ABDOMINAL PAIN UPPER [None]
  - BACK PAIN [None]
